FAERS Safety Report 8144471 (Version 3)
Quarter: 2013Q4

REPORT INFORMATION
  Report Type: Spontaneous
  Country: US (occurrence: US)
  Receive Date: 20110920
  Receipt Date: 20131112
  Transmission Date: 20140711
  Serious: Yes (Death)
  Sender: FDA-Public Use
  Company Number: US-GLAXOSMITHKLINE-A0915569A

PATIENT
  Age: 68 Year
  Sex: Male

DRUGS (1)
  1. ROSIGLITAZONE MALEATE [Suspect]
     Indication: DIABETES MELLITUS
     Dosage: 4MG PER DAY
     Route: 048
     Dates: start: 199907, end: 200301

REACTIONS (4)
  - Myocardial infarction [Fatal]
  - Cardio-respiratory arrest [Unknown]
  - Cardiac disorder [Unknown]
  - Cardiovascular disorder [Unknown]
